FAERS Safety Report 23849816 (Version 1)
Quarter: 2024Q2

REPORT INFORMATION
  Report Type: Spontaneous
  Country: FR (occurrence: FR)
  Receive Date: 20240513
  Receipt Date: 20240513
  Transmission Date: 20240716
  Serious: Yes (Hospitalization)
  Sender: FDA-Public Use
  Company Number: None

PATIENT
  Age: 70 Year
  Sex: Male
  Weight: 71 kg

DRUGS (2)
  1. LEVOFLOXACIN [Suspect]
     Active Substance: LEVOFLOXACIN
     Indication: Eschar
     Dosage: 2X500 MG PER DAY
     Route: 048
     Dates: start: 20240306, end: 20240328
  2. LINEZOLID [Suspect]
     Active Substance: LINEZOLID
     Indication: Eschar
     Dosage: 2 TEASPOONS PER DAY
     Route: 048
     Dates: start: 20240306, end: 20240328

REACTIONS (1)
  - Pancytopenia [Recovering/Resolving]

NARRATIVE: CASE EVENT DATE: 20240328
